FAERS Safety Report 8224581-5 (Version None)
Quarter: 2012Q1

REPORT INFORMATION
  Report Type: 
  Country: None (occurrence: None)
  Receive Date: 20120321
  Receipt Date: 20120309
  Transmission Date: 20120608
  Serious: Yes (Hospitalization, Other)
  Sender: FDA-Public Use
  Company Number: US-ELI_LILLY_AND_COMPANY-US201203003377

PATIENT
  Sex: Female

DRUGS (2)
  1. CYMBALTA [Suspect]
     Dosage: UNK UNK, UNKNOWN
     Dates: start: 20120101
  2. VICODIN [Concomitant]
     Dosage: UNK

REACTIONS (5)
  - HOSPITALISATION [None]
  - SUICIDAL IDEATION [None]
  - CRYING [None]
  - INSOMNIA [None]
  - DEPRESSION [None]
